FAERS Safety Report 5525866-3 (Version None)
Quarter: 2007Q4

REPORT INFORMATION
  Report Type: 
  Country: None (occurrence: None)
  Receive Date: 20071126
  Receipt Date: 20071120
  Transmission Date: 20080405
  Serious: Yes (Death)
  Sender: FDA-Public Use
  Company Number: JP-AVENTIS-200712934JP

PATIENT
  Age: 74 Year
  Sex: Female
  Weight: 58 kg

DRUGS (12)
  1. LASIX [Suspect]
     Route: 048
     Dates: start: 20061019, end: 20061107
  2. ALDACTONE [Concomitant]
     Route: 048
     Dates: start: 20061019, end: 20061107
  3. LOPRESOR                           /00376902/ [Concomitant]
     Route: 048
     Dates: start: 20061019, end: 20061109
  4. CIBENOL [Concomitant]
     Route: 048
     Dates: start: 20061019, end: 20061111
  5. GAMOFA [Concomitant]
     Dosage: DOSE: 1 AMPULE; ROUTE: GASTROSTOMY TUBE
     Route: 050
     Dates: start: 20061012, end: 20061107
  6. BUFFERIN [Concomitant]
     Route: 048
     Dates: start: 20061019, end: 20061111
  7. LANIRAPID [Concomitant]
     Route: 048
     Dates: start: 20061019, end: 20061111
  8. MYSLEE [Concomitant]
     Route: 048
     Dates: start: 20061019, end: 20061109
  9. BIOFERMIN [Concomitant]
     Dosage: DOSE: 1 TABLET
     Route: 048
     Dates: start: 20061019, end: 20061109
  10. EURODIN                            /00425901/ [Concomitant]
     Dates: end: 20061106
  11. CONSTAN                            /00595201/ [Concomitant]
     Dates: end: 20061106
  12. SEROQUEL                           /01270902/ [Concomitant]
     Dates: end: 20061111

REACTIONS (3)
  - DISSEMINATED INTRAVASCULAR COAGULATION [None]
  - SEPTIC SHOCK [None]
  - TOXIC EPIDERMAL NECROLYSIS [None]
